FAERS Safety Report 12547280 (Version 1)
Quarter: 2016Q3

REPORT INFORMATION
  Report Type: Spontaneous
  Country: US (occurrence: US)
  Receive Date: 20160711
  Receipt Date: 20160711
  Transmission Date: 20161109
  Serious: No
  Sender: FDA-Public Use
  Company Number: US-EGALET US INC-US-2015EGA000685

PATIENT

DRUGS (3)
  1. FLEXERIL [Concomitant]
     Active Substance: CYCLOBENZAPRINE HYDROCHLORIDE
     Indication: PRODUCT USED FOR UNKNOWN INDICATION
     Dosage: UNK DF, UNK
  2. TOPAMAX [Concomitant]
     Active Substance: TOPIRAMATE
     Indication: PRODUCT USED FOR UNKNOWN INDICATION
     Dosage: UNK DF, UNK
  3. SPRIX [Suspect]
     Active Substance: KETOROLAC TROMETHAMINE
     Indication: MIGRAINE
     Dosage: UNK DF, UNK
     Route: 045
     Dates: start: 20151121

REACTIONS (2)
  - Nasal discomfort [Recovered/Resolved]
  - Drug ineffective [Recovered/Resolved]

NARRATIVE: CASE EVENT DATE: 20151121
